FAERS Safety Report 4313167-0 (Version None)
Quarter: 2004Q1

REPORT INFORMATION
  Report Type: 
  Country: None (occurrence: None)
  Receive Date: 20040304
  Receipt Date: 20040220
  Transmission Date: 20041129
  Serious: Yes (Hospitalization)
  Sender: FDA-Public Use
  Company Number: 204554

PATIENT
  Age: 62 Year
  Sex: Female

DRUGS (4)
  1. HERCEPTIN [Suspect]
     Indication: BREAST CANCER
     Dosage: 271.6 MG, SINGLE, INTRAVENOUS
     Route: 042
     Dates: start: 20040122, end: 20040122
  2. DOCETAXEL (DOCETAXEL) [Suspect]
     Indication: BREAST CANCER
     Dosage: 171 MG, Q3W, INTRAVENOUS
     Route: 042
     Dates: start: 20030123
  3. DECADRON [Concomitant]
  4. ZOFRAN [Concomitant]

REACTIONS (2)
  - ABDOMINAL PAIN LOWER [None]
  - NEUTROPENIC INFECTION [None]
